FAERS Safety Report 6543803-X (Version None)
Quarter: 2010Q1

REPORT INFORMATION
  Report Type: 
  Country: None (occurrence: None)
  Receive Date: 20100120
  Receipt Date: 20100112
  Transmission Date: 20100710
  Serious: Yes (Hospitalization)
  Sender: FDA-Public Use
  Company Number: US-JNJFOC-20080801119

PATIENT
  Sex: Female
  Weight: 85.28 kg

DRUGS (24)
  1. REMICADE [Suspect]
     Indication: CROHN'S DISEASE
     Route: 042
  2. REMICADE [Suspect]
     Route: 042
  3. REMICADE [Suspect]
     Route: 042
  4. REMICADE [Suspect]
     Route: 042
  5. REMICADE [Suspect]
     Route: 042
  6. REMICADE [Suspect]
     Route: 042
  7. REMICADE [Suspect]
     Route: 042
  8. REMICADE [Suspect]
     Route: 042
  9. REMICADE [Suspect]
     Route: 042
  10. REMICADE [Suspect]
     Route: 042
  11. REMICADE [Suspect]
     Route: 042
  12. REMICADE [Suspect]
     Dosage: ADMINISTERED 2 INFUSION OF INFLIXIMAB PRIOR TO REGISTRY
     Route: 042
  13. REMICADE [Suspect]
     Route: 042
  14. REMICADE [Suspect]
     Route: 042
  15. REMICADE [Suspect]
     Route: 042
  16. REMICADE [Suspect]
     Route: 042
  17. REMICADE [Suspect]
     Route: 042
  18. REMICADE [Suspect]
     Route: 042
  19. ANTIDEPRESSANTS [Concomitant]
     Indication: CROHN'S DISEASE
  20. NARCOTIC ANALGESICS [Concomitant]
     Indication: CROHN'S DISEASE
  21. ANTISPASMODICS [Concomitant]
     Indication: CROHN'S DISEASE
  22. PREDNISONE [Concomitant]
     Indication: CROHN'S DISEASE
  23. CREON [Concomitant]
     Indication: CROHN'S DISEASE
  24. ADALIMUMAB [Concomitant]
     Indication: CROHN'S DISEASE

REACTIONS (2)
  - HERPES ZOSTER [None]
  - TUBULOINTERSTITIAL NEPHRITIS [None]
